FAERS Safety Report 6187905-9 (Version None)
Quarter: 2009Q2

REPORT INFORMATION
  Report Type: 
  Country: None (occurrence: None)
  Receive Date: 20090511
  Receipt Date: 20090511
  Transmission Date: 20091009
  Serious: No
  Sender: FDA-Public Use
  Company Number: None

PATIENT
  Sex: Male
  Weight: 100 kg

DRUGS (1)
  1. METOCLOPRAMIDE HCL [Suspect]
     Indication: NAUSEA
     Dosage: 10 MG ONCE IVP
     Route: 042
     Dates: start: 20090509

REACTIONS (6)
  - ABNORMAL BEHAVIOUR [None]
  - AGITATION [None]
  - ANXIETY [None]
  - CRYING [None]
  - HYPERHIDROSIS [None]
  - RESTLESSNESS [None]
